FAERS Safety Report 18445510 (Version 1)
Quarter: 2020Q4

REPORT INFORMATION
  Report Type: Spontaneous
  Country: US (occurrence: US)
  Receive Date: 20201029
  Receipt Date: 20201029
  Transmission Date: 20210114
  Serious: Yes (Hospitalization)
  Sender: FDA-Public Use
  Company Number: None

PATIENT
  Age: 47 Year
  Sex: Female
  Weight: 64.86 kg

DRUGS (12)
  1. SYNTHROID [Concomitant]
     Active Substance: LEVOTHYROXINE SODIUM
  2. FERROUS SULFATE. [Concomitant]
     Active Substance: FERROUS SULFATE
  3. ELIQUIS [Concomitant]
     Active Substance: APIXABAN
  4. MONTELEUKAST [Concomitant]
     Active Substance: MONTELUKAST SODIUM
  5. PROCHLOPERAZINE [Concomitant]
  6. SENNA [Concomitant]
     Active Substance: SENNA LEAF\SENNOSIDES\SENNOSIDES A AND B
  7. SPIRONOLACTONE. [Concomitant]
     Active Substance: SPIRONOLACTONE
  8. CAPECITABINE. [Suspect]
     Active Substance: CAPECITABINE
     Indication: BONE CANCER
     Route: 048
     Dates: start: 20201013
  9. TUKYSA [Concomitant]
     Active Substance: TUCATINIB
  10. JANUMET [Concomitant]
     Active Substance: METFORMIN HYDROCHLORIDE\SITAGLIPTIN PHOSPHATE
  11. ZOFRAN [Concomitant]
     Active Substance: ONDANSETRON HYDROCHLORIDE
  12. RAMIPRIL. [Concomitant]
     Active Substance: RAMIPRIL

REACTIONS (1)
  - Hospitalisation [None]

NARRATIVE: CASE EVENT DATE: 20201029
